FAERS Safety Report 4269548-7 (Version None)
Quarter: 2004Q1

REPORT INFORMATION
  Report Type: 
  Country: None (occurrence: None)
  Receive Date: 20040113
  Receipt Date: 20031218
  Transmission Date: 20041129
  Serious: Yes (Hospitalization)
  Sender: FDA-Public Use
  Company Number: PHEH2003US11581

PATIENT
  Age: 54 Year
  Sex: Female
  Weight: 54 kg

DRUGS (5)
  1. ZELNORM [Suspect]
     Indication: IMPAIRED GASTRIC EMPTYING
     Dosage: 6 MG, BID
     Dates: start: 20030908, end: 20030915
  2. ELAVIL [Concomitant]
     Indication: INSOMNIA
     Dosage: 150 MG, QD
     Route: 048
  3. REGLAN [Concomitant]
     Indication: IMPAIRED GASTRIC EMPTYING
     Dosage: 20 MG, UNK
  4. FLEXERIL [Concomitant]
     Indication: MUSCLE SPASMS
  5. INSULIN [Concomitant]

REACTIONS (6)
  - CONFUSIONAL STATE [None]
  - DEHYDRATION [None]
  - DISORIENTATION [None]
  - HALLUCINATION [None]
  - IMPAIRED GASTRIC EMPTYING [None]
  - MENTAL STATUS CHANGES [None]
